FAERS Safety Report 6317115-3 (Version None)
Quarter: 2009Q3

REPORT INFORMATION
  Report Type: 
  Country: None (occurrence: None)
  Receive Date: 20090819
  Receipt Date: 20090804
  Transmission Date: 20100115
  Serious: Yes (Hospitalization)
  Sender: FDA-Public Use
  Company Number: AUR-APL-2009-00348

PATIENT
  Age: 62 Year
  Sex: Female

DRUGS (3)
  1. MIRTAZAPINE [Suspect]
     Indication: SLEEP DISORDER
     Dosage: 15MG, QHS
  2. SERTRALINE HCL [Suspect]
     Indication: DEPRESSION
     Dosage: 100MG, DAILY
  3. LAMOTRIGINE [Suspect]
     Dosage: 25MG, DAILY

REACTIONS (2)
  - INFLUENZA LIKE ILLNESS [None]
  - STEVENS-JOHNSON SYNDROME [None]
